FAERS Safety Report 6299766-8 (Version None)
Quarter: 2009Q3

REPORT INFORMATION
  Report Type: 
  Country: None (occurrence: None)
  Receive Date: 20090806
  Receipt Date: 20090619
  Transmission Date: 20100115
  Serious: Yes (Hospitalization, Other)
  Sender: FDA-Public Use
  Company Number: JP-JNJFOC-20090300910

PATIENT
  Sex: Male

DRUGS (14)
  1. TOPINA [Suspect]
     Route: 048
  2. TOPINA [Suspect]
     Route: 048
  3. TOPINA [Suspect]
     Indication: HODGKIN'S DISEASE NODULAR SCLEROSIS STAGE UNSPECIFIED
     Route: 048
  4. DEPAKENE [Suspect]
     Indication: HODGKIN'S DISEASE NODULAR SCLEROSIS STAGE UNSPECIFIED
     Route: 048
  5. EXCEGRAN [Concomitant]
     Indication: HODGKIN'S DISEASE NODULAR SCLEROSIS STAGE UNSPECIFIED
     Route: 048
  6. MYSTAN [Concomitant]
     Route: 048
  7. MYSTAN [Concomitant]
     Route: 048
  8. RIVOTRIL [Concomitant]
     Route: 048
  9. RIVOTRIL [Concomitant]
     Route: 048
  10. RIVOTRIL [Concomitant]
     Route: 048
  11. SELBEX [Concomitant]
     Route: 048
  12. GASTER D [Concomitant]
     Route: 048
  13. LEVOCARNITINE [Concomitant]
     Route: 048
  14. MAGNESIUM OXIDE [Concomitant]
     Route: 048

REACTIONS (13)
  - ABDOMINAL PAIN [None]
  - CONSTIPATION [None]
  - DECREASED APPETITE [None]
  - DIARRHOEA [None]
  - GASTRIC POLYPS [None]
  - GASTRITIS [None]
  - HEPATIC FUNCTION ABNORMAL [None]
  - HYPERAMMONAEMIA [None]
  - HYPOAESTHESIA [None]
  - NASOPHARYNGITIS [None]
  - PAIN IN EXTREMITY [None]
  - THROMBOCYTOPENIA [None]
  - WEIGHT INCREASED [None]
